FAERS Safety Report 8317791-X (Version None)
Quarter: 2012Q2

REPORT INFORMATION
  Report Type: 
  Country: None (occurrence: None)
  Receive Date: 20120427
  Receipt Date: 20120413
  Transmission Date: 20120825
  Serious: Yes (Death, Hospitalization, Other)
  Sender: FDA-Public Use
  Company Number: US-MYLANLABS-2009AC000319

PATIENT
  Age: 73 Year
  Sex: Male

DRUGS (7)
  1. DIGOXIN [Suspect]
     Route: 048
     Dates: start: 20071101, end: 20071201
  2. FLOMAX [Concomitant]
  3. COUMADIN [Concomitant]
  4. LOPRESSOR [Concomitant]
  5. FERROUS SULFATE TAB [Concomitant]
  6. COLACE [Concomitant]
  7. ZOCOR [Concomitant]

REACTIONS (17)
  - DEATH [None]
  - CORONARY ARTERY DISEASE [None]
  - CEREBELLAR INFARCTION [None]
  - ATRIAL FIBRILLATION [None]
  - CORONARY ARTERY BYPASS [None]
  - AORTIC ANEURYSM [None]
  - PLEURAL FIBROSIS [None]
  - HYPERLIPIDAEMIA [None]
  - INJURY [None]
  - SYNCOPE [None]
  - VENTRICULAR TACHYCARDIA [None]
  - PLEURAL CALCIFICATION [None]
  - ANGINA PECTORIS [None]
  - HYPERTENSION [None]
  - ARTERIOSCLEROSIS [None]
  - ECONOMIC PROBLEM [None]
  - ILL-DEFINED DISORDER [None]
